FAERS Safety Report 18719377 (Version 1)
Quarter: 2021Q1

REPORT INFORMATION
  Report Type: Spontaneous
  Country: CA (occurrence: CA)
  Receive Date: 20210108
  Receipt Date: 20210108
  Transmission Date: 20210419
  Serious: Yes (Hospitalization)
  Sender: FDA-Public Use
  Company Number: CA-TEVA-2020-CA-1865574

PATIENT
  Sex: Male
  Weight: 55 kg

DRUGS (7)
  1. TEVA?PREDNISONE [Suspect]
     Active Substance: PREDNISONE
     Indication: CHRONIC OBSTRUCTIVE PULMONARY DISEASE
     Dosage: 25 MILLIGRAM DAILY;
     Route: 048
  2. NICOTINE. [Concomitant]
     Active Substance: NICOTINE
  3. TEVA?NAPROXEN [Suspect]
     Active Substance: NAPROXEN
     Indication: FRACTURE PAIN
     Dosage: 500 MILLIGRAM DAILY;
     Route: 048
  4. SPIRIVA [Concomitant]
     Active Substance: TIOTROPIUM BROMIDE MONOHYDRATE
  5. VENTOLIN [Concomitant]
     Active Substance: ALBUTEROL SULFATE
     Route: 055
  6. SEREVENT DISKUS (50MCG/DOSE) [Concomitant]
  7. TYLENOL [Concomitant]
     Active Substance: ACETAMINOPHEN

REACTIONS (3)
  - Faeces discoloured [Not Recovered/Not Resolved]
  - Gastrointestinal ulcer haemorrhage [Not Recovered/Not Resolved]
  - Diarrhoea [Not Recovered/Not Resolved]
